FAERS Safety Report 19208226 (Version 4)
Quarter: 2021Q4

REPORT INFORMATION
  Report Type: Spontaneous
  Country: US (occurrence: US)
  Receive Date: 20210503
  Receipt Date: 20211116
  Transmission Date: 20220304
  Serious: Yes (Hospitalization, Other)
  Sender: FDA-Public Use
  Company Number: US-MLMSERVICE-20210413-2833288-1

PATIENT
  Age: 29 Year
  Sex: Male

DRUGS (2)
  1. GEMCITABINE HYDROCHLORIDE [Suspect]
     Active Substance: GEMCITABINE HYDROCHLORIDE
     Indication: Cholangiocarcinoma
     Dosage: 1000 MG/M2, CYCLIC (ON DAYS 1 AND 8 OF EACH 21-DAY CYCLE, FOR A TOTAL OF 9 CYCLES)
     Route: 042
  2. CISPLATIN [Concomitant]
     Active Substance: CISPLATIN
     Indication: Cholangiocarcinoma
     Dosage: 25 MG/M2, CYCLIC (ON DAYS 1 AND 8 OF EACH 21-DAY CYCLE, FOR A TOTAL OF 9 CYCLES)
     Route: 042

REACTIONS (3)
  - Thrombotic microangiopathy [Recovered/Resolved]
  - Disease progression [Recovered/Resolved]
  - Atypical haemolytic uraemic syndrome [Recovered/Resolved]
